FAERS Safety Report 6669073-X (Version None)
Quarter: 2010Q2

REPORT INFORMATION
  Report Type: 
  Country: None (occurrence: None)
  Receive Date: 20100402
  Receipt Date: 20100326
  Transmission Date: 20101027
  Serious: Yes (Other)
  Sender: FDA-Public Use
  Company Number: 233180J10USA

PATIENT
  Age: 56 Year
  Sex: Female

DRUGS (2)
  1. REBIF [Suspect]
     Indication: MULTIPLE SCLEROSIS
     Dosage: 44 MCG, 3 IN 1 WEEKS, SUBCUTANEOUS
     Route: 058
     Dates: start: 20090923
  2. PREDNISONE TAB [Concomitant]

REACTIONS (4)
  - DIAPHRAGMATIC PARALYSIS [None]
  - FATIGUE [None]
  - INJECTION SITE PAIN [None]
  - TOTAL LUNG CAPACITY DECREASED [None]
